FAERS Safety Report 16672970 (Version 5)
Quarter: 2020Q1

REPORT INFORMATION
  Report Type: Spontaneous
  Country: CA (occurrence: CA)
  Receive Date: 20190806
  Receipt Date: 20200220
  Transmission Date: 20200409
  Serious: Yes (Death, Life-Threatening, Hospitalization, Other)
  Sender: FDA-Public Use
  Company Number: CA-PFIZER INC-2019329931

PATIENT
  Weight: .65 kg

DRUGS (18)
  1. ERYTHROMYCIN. [Suspect]
     Active Substance: ERYTHROMYCIN
     Dosage: UNK
     Route: 064
  2. CEFOTAXIME [Suspect]
     Active Substance: CEFOTAXIME SODIUM
     Indication: ANTIBIOTIC THERAPY
     Dosage: 50 MG/KG, 2X/DAY  (EVERY 12 HOURS)
     Route: 042
  3. AMPICILLIN SODIUM/AMPICILLIN TRIHYDRATE [Suspect]
     Active Substance: AMPICILLIN
     Dosage: 50 MG/KG, 2X/DAY (1 EVERY 12 HOUR(S)
     Route: 064
  4. CEFOTAXIME [Suspect]
     Active Substance: CEFOTAXIME SODIUM
     Indication: RENAL FAILURE
     Dosage: 50 MG/KG, 4X/DAY (1 EVERY 6 HOURS)
     Route: 064
  5. SULFAMETHOXAZOLE/TRIMETHOPRIM [Suspect]
     Active Substance: SULFAMETHOXAZOLE\TRIMETHOPRIM
     Dosage: 3 MG/KG, UNK
     Route: 064
  6. VANCOMYCIN HCL [Suspect]
     Active Substance: VANCOMYCIN HYDROCHLORIDE
     Indication: ANTIBIOTIC THERAPY
     Dosage: 15 MG/KG, 1X/DAY (EVERY 24 HOURS)
     Route: 042
  7. AMPICILLIN [Suspect]
     Active Substance: AMPICILLIN
     Indication: ANTIBIOTIC THERAPY
     Dosage: 50 MG/KG, 2X/DAY (EVERY 12 HOURS)
     Route: 064
  8. LEVOFLOXACIN. [Suspect]
     Active Substance: LEVOFLOXACIN
     Indication: STENOTROPHOMONAS INFECTION
     Dosage: 10 MG/KG, 2X/DAY (1 EVERY 12 HOUR(S))
     Route: 048
  9. BETAMETHASON [BETAMETHASONE] [Suspect]
     Active Substance: BETAMETHASONE
     Dosage: UNK
     Route: 064
  10. AMOXICILLIN. [Suspect]
     Active Substance: AMOXICILLIN
     Dosage: UNK
     Route: 064
  11. SULFAMETHOXAZOLE/TRIMETHOPRIM [Suspect]
     Active Substance: SULFAMETHOXAZOLE\TRIMETHOPRIM
     Dosage: 2 MG/KG, 4X/DAY (1 EVERY 6 HOUR(S))
     Route: 064
  12. SULFAMETHOXAZOLE/TRIMETHOPRIM [Suspect]
     Active Substance: SULFAMETHOXAZOLE\TRIMETHOPRIM
     Indication: STENOTROPHOMONAS INFECTION
     Dosage: 5 MG/KG, 4X/DAY (1 EVERY 6 HOUR(S))
     Route: 065
  13. MEROPENEM. [Suspect]
     Active Substance: MEROPENEM
     Indication: RESPIRATORY TRACT INFECTION
     Dosage: 20 MG/KG, 2X/DAY (EVERY 12 HOURS)
  14. AMPICILLIN SODIUM/AMPICILLIN TRIHYDRATE [Suspect]
     Active Substance: AMPICILLIN
     Dosage: UNK
     Route: 064
  15. GENTAMICIN SULFATE. [Suspect]
     Active Substance: GENTAMICIN SULFATE
     Indication: ANTIBIOTIC THERAPY
     Dosage: 5 MG/KG; EVERY 48 HOURS
     Route: 042
  16. LEVOFLOXACIN. [Suspect]
     Active Substance: LEVOFLOXACIN
     Dosage: 1 MG/KG, 2X/DAY (1 EVERY 12 HOUR(S))
     Route: 064
  17. SULFAMETHOXAZOLE/TRIMETHOPRIM [Suspect]
     Active Substance: SULFAMETHOXAZOLE\TRIMETHOPRIM
     Dosage: 1 MG/KG, 2X/DAY (1 EVERY 12 HOUR(S))
     Route: 064
  18. SULFAMETHOXAZOLE/TRIMETHOPRIM [Suspect]
     Active Substance: SULFAMETHOXAZOLE\TRIMETHOPRIM
     Dosage: 2.5 MG/KG, 4X/DAY (1 EVERY 6 HOUR(S))
     Route: 064

REACTIONS (9)
  - Respiratory disorder neonatal [Fatal]
  - Pneumonia bacterial [Fatal]
  - Lethargy [Fatal]
  - Stenotrophomonas infection [Fatal]
  - Renal impairment neonatal [Fatal]
  - Hypotonia neonatal [Fatal]
  - Maternal exposure during pregnancy [Fatal]
  - Premature baby [Fatal]
  - Umbilical erythema [Fatal]
